FAERS Safety Report 6541449-0 (Version None)
Quarter: 2010Q1

REPORT INFORMATION
  Report Type: 
  Country: None (occurrence: None)
  Receive Date: 20100118
  Receipt Date: 20100112
  Transmission Date: 20100710
  Serious: Yes (Hospitalization)
  Sender: FDA-Public Use
  Company Number: PHHO2010JP00822

PATIENT
  Sex: Male
  Weight: 13 kg

DRUGS (4)
  1. ACZ885 ACZ+ [Suspect]
     Indication: CRYOPYRIN ASSOCIATED PERIODIC SYNDROME
     Dosage: UNKNOWN
     Route: 058
     Dates: start: 20100106
  2. NAIXAN [Concomitant]
  3. RHEUMATREX [Concomitant]
  4. FOLIAMIN [Concomitant]

REACTIONS (5)
  - DECREASED APPETITE [None]
  - PNEUMONIA [None]
  - PYREXIA [None]
  - UPPER AIRWAY OBSTRUCTION [None]
  - VOMITING [None]
